FAERS Safety Report 4921567-0 (Version None)
Quarter: 2006Q1

REPORT INFORMATION
  Report Type: 
  Country: None (occurrence: None)
  Receive Date: 20060224
  Receipt Date: 20060217
  Transmission Date: 20060701
  Serious: Yes (Death, Hospitalization, Other)
  Sender: FDA-Public Use
  Company Number: PHBS2006CA02667

PATIENT
  Age: 49 Year
  Sex: Female

DRUGS (3)
  1. CYCLOSPORINE [Suspect]
     Indication: RENAL TRANSPLANT
     Dosage: 150 MG, BID
     Route: 048
  2. PREDNISONE [Concomitant]
     Dosage: 15 MG/DAY
     Route: 048
  3. AZATHIOPRINE [Concomitant]
     Dosage: 50 MG/DAY
     Route: 048

REACTIONS (6)
  - HYPERTENSION [None]
  - KAPOSI'S SARCOMA [None]
  - LESION EXCISION [None]
  - ORAL SOFT TISSUE DISORDER [None]
  - PNEUMONITIS [None]
  - RENAL FAILURE [None]
